FAERS Safety Report 10037962 (Version 1)
Quarter: 2014Q1

REPORT INFORMATION
  Report Type: Spontaneous
  Country: US (occurrence: None)
  Receive Date: 20140325
  Receipt Date: 20140325
  Transmission Date: 20141002
  Serious: Yes (Hospitalization)
  Sender: FDA-Public Use
  Company Number: None

PATIENT
  Age: 56 Year
  Sex: Male
  Weight: 90.7 kg

DRUGS (2)
  1. ALFA 2 INTERFERON 2B (INTRON-A) [Suspect]
     Dates: end: 20130114
  2. ZOLOFT [Suspect]

REACTIONS (5)
  - Depression [None]
  - Suicidal ideation [None]
  - Self injurious behaviour [None]
  - Confusional state [None]
  - Delirium [None]
